FAERS Safety Report 23151500 (Version 1)
Quarter: 2023Q4

REPORT INFORMATION
  Report Type: Spontaneous
  Country: US (occurrence: US)
  Receive Date: 20231107
  Receipt Date: 20231107
  Transmission Date: 20240110
  Serious: No
  Sender: FDA-Public Use
  Company Number: US-Bion-012298

PATIENT
  Age: 77 Year
  Sex: Female

DRUGS (2)
  1. NAPROXEN SODIUM [Suspect]
     Active Substance: NAPROXEN SODIUM
     Indication: Pain
     Dosage: 2 CAPSULES DAILY
     Route: 048
     Dates: end: 20231102
  2. MIRALAX [Concomitant]
     Active Substance: POLYETHYLENE GLYCOL 3350
     Indication: Gastrointestinal disorder
     Dosage: 4 TABLESPOONS IN 12OZ OF WATER DOSE
     Route: 048
     Dates: start: 20231025, end: 20231027

REACTIONS (1)
  - Faeces discoloured [Unknown]
